FAERS Safety Report 7399515-6 (Version None)
Quarter: 2011Q2

REPORT INFORMATION
  Report Type: 
  Country: None (occurrence: None)
  Receive Date: 20110407
  Receipt Date: 20110328
  Transmission Date: 20111010
  Serious: Yes (Hospitalization, Other)
  Sender: FDA-Public Use
  Company Number: US-ELI_LILLY_AND_COMPANY-US201002007383

PATIENT
  Sex: Female

DRUGS (8)
  1. FORTEO [Suspect]
     Dosage: 20 UG, QD
  2. RESTORIL [Concomitant]
  3. NEXIUM [Concomitant]
     Dosage: 40 MG, DAILY (1/D)
     Route: 065
  4. EXFORGE [Concomitant]
     Dosage: UNK, DAILY (1/D)
     Route: 065
  5. LORAZEPAM [Concomitant]
     Dosage: UNK, 6/W
  6. ALLOPURINOL [Concomitant]
     Dosage: 100 MG, DAILY (1/D)
     Route: 065
  7. FORTEO [Suspect]
     Indication: OSTEOPOROSIS
     Dosage: 20 UG, DAILY (1/D)
     Route: 065
  8. LORTAB [Concomitant]
     Indication: PAIN
     Dosage: UNK, AS NEEDED
     Route: 065

REACTIONS (5)
  - BACK PAIN [None]
  - BURSITIS [None]
  - DIARRHOEA [None]
  - INTERVERTEBRAL DISC DEGENERATION [None]
  - CATARACT OPERATION [None]
